FAERS Safety Report 17675465 (Version 1)
Quarter: 2020Q2

REPORT INFORMATION
  Report Type: Spontaneous
  Country: US (occurrence: US)
  Receive Date: 20200415
  Receipt Date: 20200415
  Transmission Date: 20200714
  Serious: Yes (Life-Threatening, Hospitalization)
  Sender: FDA-Public Use
  Company Number: None

PATIENT
  Age: 64 Year
  Sex: Male

DRUGS (2)
  1. CEFTRIAXONE (CEFTRIAXONE NA 1GM/VIL INJ) [Suspect]
     Active Substance: CEFTRIAXONE SODIUM
     Dosage: ?          OTHER STRENGTH:1GM/VIL;?
     Route: 042
     Dates: start: 20190118, end: 20190213
  2. VANCOMYCIN (VANCOMYCIN 1MG/VIL INJ) [Suspect]
     Active Substance: VANCOMYCIN HYDROCHLORIDE
     Indication: ARTHRITIS INFECTIVE
     Dosage: ?          OTHER STRENGTH:1GM/VIL;?
     Route: 042
     Dates: start: 20190118, end: 20190213

REACTIONS (7)
  - Drug reaction with eosinophilia and systemic symptoms [None]
  - Antibiotic level above therapeutic [None]
  - Acute kidney injury [None]
  - Anaphylactic reaction [None]
  - Oedematous pancreatitis [None]
  - Respiratory distress [None]
  - Angioedema [None]

NARRATIVE: CASE EVENT DATE: 20190216
